FAERS Safety Report 5713818-X (Version None)
Quarter: 2008Q2

REPORT INFORMATION
  Report Type: 
  Country: None (occurrence: None)
  Receive Date: 20080423
  Receipt Date: 20080411
  Transmission Date: 20081010
  Serious: Yes (Other)
  Sender: FDA-Public Use
  Company Number: GB-RANBAXY-2008RR-14424

PATIENT

DRUGS (3)
  1. FLUOXETINE [Suspect]
     Indication: ANXIETY
     Dosage: 20 MG, UNK
     Route: 048
     Dates: start: 20071128, end: 20071221
  2. FLUOXETINE [Suspect]
     Indication: DEPRESSED MOOD
  3. TRANEXAMIC ACID [Concomitant]
     Indication: MENORRHAGIA
     Dosage: 500 MG, UNK
     Dates: start: 20070928

REACTIONS (2)
  - JOINT STIFFNESS [None]
  - TRISMUS [None]
